FAERS Safety Report 5575018-6 (Version None)
Quarter: 2007Q4

REPORT INFORMATION
  Report Type: 
  Country: None (occurrence: None)
  Receive Date: 20071227
  Receipt Date: 20071105
  Transmission Date: 20080405
  Serious: Yes (Other)
  Sender: FDA-Public Use
  Company Number: US-PURDUE-USA_2007_0030805

PATIENT
  Age: 47 Year
  Sex: Male
  Weight: 107 kg

DRUGS (10)
  1. OXYCONTIN [Suspect]
     Indication: PAIN
     Dosage: UNK, SEE TEXT
     Dates: start: 20010904, end: 20020405
  2. CLONAZEPAM [Concomitant]
     Dosage: 2 MG, QID
  3. VIOXX [Concomitant]
     Dosage: 50 MG, DAILY
  4. PAXIL [Concomitant]
     Dosage: 20 MG, UNK
  5. TRAZODONE HCL [Concomitant]
     Dosage: 25 MG, UNK
  6. NEURONTIN [Concomitant]
     Dosage: 300 MG, TID
  7. OSCAL [Concomitant]
     Dosage: 500 MG, TID
  8. DEPAKOTE [Concomitant]
     Dosage: 500 MG, BID
  9. SEROQUEL [Concomitant]
     Dosage: 200 UNK, TID
  10. METHOCARBAMOL [Concomitant]
     Dosage: 750 MG, BID

REACTIONS (8)
  - AMNESIA [None]
  - DEPRESSION [None]
  - DRUG DEPENDENCE [None]
  - HALLUCINATION [None]
  - INSOMNIA [None]
  - MOOD SWINGS [None]
  - SUICIDAL IDEATION [None]
  - TREMOR [None]
